FAERS Safety Report 15572181 (Version 1)
Quarter: 2018Q4

REPORT INFORMATION
  Report Type: Spontaneous
  Country: US (occurrence: US)
  Receive Date: 20181031
  Receipt Date: 20181031
  Transmission Date: 20190205
  Serious: No
  Sender: FDA-Public Use
  Company Number: US-EMMAUS MEDICAL, INC.-EMM201807-000375

PATIENT
  Age: 65 Year
  Sex: Male

DRUGS (9)
  1. ENDARI [Suspect]
     Active Substance: GLUTAMINE
     Indication: THALASSAEMIA SICKLE CELL
     Route: 048
     Dates: start: 20180518, end: 20180704
  2. COREG [Concomitant]
     Active Substance: CARVEDILOL
  3. VALSARTAN. [Concomitant]
     Active Substance: VALSARTAN
  4. OXYCODONE [Concomitant]
     Active Substance: OXYCODONE
  5. LANTUS SOLOSTAR [Concomitant]
     Active Substance: INSULIN GLARGINE
  6. DIOVAN [Concomitant]
     Active Substance: VALSARTAN
  7. GLUCOPHAGE [Concomitant]
     Active Substance: METFORMIN HYDROCHLORIDE
  8. ASPIRIN. [Concomitant]
     Active Substance: ASPIRIN
  9. MS CONTIN [Concomitant]
     Active Substance: MORPHINE SULFATE

REACTIONS (2)
  - Diabetes mellitus [Unknown]
  - Condition aggravated [Unknown]

NARRATIVE: CASE EVENT DATE: 20180704
